FAERS Safety Report 4720888-4 (Version None)
Quarter: 2005Q3

REPORT INFORMATION
  Report Type: 
  Country: None (occurrence: None)
  Receive Date: 20050720
  Receipt Date: 20050708
  Transmission Date: 20060218
  Serious: Yes (Hospitalization, Disabling)
  Sender: FDA-Public Use
  Company Number: SEWYE802906JUL05

PATIENT
  Age: 48 Year
  Sex: Female

DRUGS (18)
  1. EFFEXOR XR [Suspect]
     Indication: ALCOHOLISM
     Dosage: SEE IMAGE
     Dates: start: 20050530, end: 20050602
  2. EFFEXOR XR [Suspect]
     Indication: BIPOLAR I DISORDER
     Dosage: SEE IMAGE
     Dates: start: 20050530, end: 20050602
  3. EFFEXOR XR [Suspect]
     Indication: PERSONALITY DISORDER
     Dosage: SEE IMAGE
     Dates: start: 20050530, end: 20050602
  4. EFFEXOR XR [Suspect]
     Indication: ALCOHOLISM
     Dosage: SEE IMAGE
     Dates: start: 20050602, end: 20050606
  5. EFFEXOR XR [Suspect]
     Indication: BIPOLAR I DISORDER
     Dosage: SEE IMAGE
     Dates: start: 20050602, end: 20050606
  6. EFFEXOR XR [Suspect]
     Indication: PERSONALITY DISORDER
     Dosage: SEE IMAGE
     Dates: start: 20050602, end: 20050606
  7. EFFEXOR XR [Suspect]
     Indication: ALCOHOLISM
     Dosage: SEE IMAGE
     Dates: start: 20050606, end: 20050613
  8. EFFEXOR XR [Suspect]
     Indication: BIPOLAR I DISORDER
     Dosage: SEE IMAGE
     Dates: start: 20050606, end: 20050613
  9. EFFEXOR XR [Suspect]
     Indication: PERSONALITY DISORDER
     Dosage: SEE IMAGE
     Dates: start: 20050606, end: 20050613
  10. EFFEXOR XR [Suspect]
     Indication: ALCOHOLISM
     Dosage: SEE IMAGE
     Dates: start: 20050613, end: 20050614
  11. EFFEXOR XR [Suspect]
     Indication: BIPOLAR I DISORDER
     Dosage: SEE IMAGE
     Dates: start: 20050613, end: 20050614
  12. EFFEXOR XR [Suspect]
     Indication: PERSONALITY DISORDER
     Dosage: SEE IMAGE
     Dates: start: 20050613, end: 20050614
  13. OXAZEPAM [Concomitant]
  14. ............. [Concomitant]
  15. TENOX (TEMAZEPAM) [Concomitant]
  16. TEVETEN [Concomitant]
  17. ENALAPRIL MALEATE [Concomitant]
  18. PAROXETINE HCL [Concomitant]

REACTIONS (12)
  - ABDOMINAL DISTENSION [None]
  - ABDOMINAL PAIN [None]
  - ABNORMAL BEHAVIOUR [None]
  - ANOSMIA [None]
  - CEREBELLAR ATROPHY [None]
  - CRYING [None]
  - DEPRESSION [None]
  - DRUG INEFFECTIVE [None]
  - FEAR [None]
  - OLFACTORY NERVE DISORDER [None]
  - POSITIVE ROMBERGISM [None]
  - SUICIDAL IDEATION [None]
